FAERS Safety Report 10213304 (Version 1)
Quarter: 2014Q2

REPORT INFORMATION
  Report Type: Other
  Country: CN (occurrence: CN)
  Receive Date: 20140603
  Receipt Date: 20140603
  Transmission Date: 20141212
  Serious: Yes (Death, Other)
  Sender: FDA-Public Use
  Company Number: CN-LUPIN PHARMACEUTICALS INC.-2013-01687

PATIENT
  Age: 9 Day
  Sex: Male

DRUGS (3)
  1. CEFTRIAXONE [Suspect]
     Indication: HYPERBILIRUBINAEMIA
     Route: 065
  2. VITAMIN B6 [Concomitant]
     Indication: PRODUCT USED FOR UNKNOWN INDICATION
     Route: 065
  3. VITAMIN C [Concomitant]
     Indication: PRODUCT USED FOR UNKNOWN INDICATION
     Route: 065

REACTIONS (3)
  - Anaphylactic shock [Fatal]
  - Off label use [Unknown]
  - Overdose [Not Recovered/Not Resolved]
